FAERS Safety Report 12076150 (Version 4)
Quarter: 2021Q1

REPORT INFORMATION
  Report Type: Spontaneous
  Country: US (occurrence: US)
  Receive Date: 20160215
  Receipt Date: 20210310
  Transmission Date: 20210419
  Serious: Yes (Hospitalization, Other)
  Sender: FDA-Public Use
  Company Number: US-AUROBINDO-AUR-APL-2016-01486

PATIENT
  Age: 12 Month
  Sex: Female
  Weight: 8 kg

DRUGS (9)
  1. FENTANYL. [Concomitant]
     Active Substance: FENTANYL
     Indication: ANAESTHESIA
     Dosage: 2 ?G/ML, AT A RATE OF 2.5 ML/H
     Route: 008
  2. MORPHINE [Concomitant]
     Active Substance: MORPHINE
     Indication: SEDATION
     Dosage: UNK
     Route: 065
  3. BUPIVACAINE HYDROCHLORIDE. [Suspect]
     Active Substance: BUPIVACAINE HYDROCHLORIDE
     Indication: ANAESTHESIA
     Dosage: 0.31 MILLIGRAM/KILOGRAM 2 ML (0.125%)
     Route: 008
  4. DEXMEDETOMIDINE. [Concomitant]
     Active Substance: DEXMEDETOMIDINE
     Indication: SEDATION
     Dosage: UNK
     Route: 065
  5. FENTANYL. [Concomitant]
     Active Substance: FENTANYL
     Dosage: 0.6 MICROGRAM/KILOGRAM/HOUR
     Route: 008
  6. FENTANYL. [Concomitant]
     Active Substance: FENTANYL
     Dosage: 0.6 MICROGRAM/KILOGRAM
     Route: 008
  7. FENTANYL. [Concomitant]
     Active Substance: FENTANYL
     Dosage: 0.6 MICROGRAM/KILOGRAM
     Route: 008
  8. BUPIVACAINE HYDROCHLORIDE. [Suspect]
     Active Substance: BUPIVACAINE HYDROCHLORIDE
     Dosage: 0.39 MILLIGRAM/KILOGRAM
     Route: 008
  9. BUPIVACAINE HYDROCHLORIDE. [Suspect]
     Active Substance: BUPIVACAINE HYDROCHLORIDE
     Dosage: 0.39 MILLIGRAM/KILOGRAM
     Route: 008

REACTIONS (4)
  - Seizure [Recovered/Resolved]
  - Hepatic function abnormal [Unknown]
  - Intra-abdominal pressure increased [Unknown]
  - Toxicity to various agents [Recovered/Resolved]
